FAERS Safety Report 19058861 (Version 5)
Quarter: 2021Q2

REPORT INFORMATION
  Report Type: Spontaneous
  Country: US (occurrence: US)
  Receive Date: 20210325
  Receipt Date: 20210528
  Transmission Date: 20210717
  Serious: Yes (Other)
  Sender: FDA-Public Use
  Company Number: US-BAYER-2021-106518

PATIENT
  Age: 18 Year
  Sex: Male
  Weight: 82.54 kg

DRUGS (5)
  1. JIVI [Suspect]
     Active Substance: DAMOCTOCOG ALFA PEGOL
     Indication: HAEMOPHILIA
     Dosage: 4000 IU, IUD (4000 UNITS +/? 10%)
     Route: 042
     Dates: start: 20210315, end: 20210315
  2. ACETAMINOPHEN. [Concomitant]
     Active Substance: ACETAMINOPHEN
     Dosage: 325 MG (TAKE TO 2 TABLETS BY MOUTH Q 4 TO 6HR)
     Route: 048
  3. HELIXATE FS [Concomitant]
     Active Substance: ANTIHEMOPHILIC FACTOR, HUMAN RECOMBINANT
     Indication: HAEMORRHAGE
     Dosage: UNK UNK, PRN
     Route: 042
  4. TRANEXAMIC ACID. [Concomitant]
     Active Substance: TRANEXAMIC ACID
     Indication: HAEMORRHAGE
     Dosage: 1300 MG, TID
     Route: 048
  5. JIVI [Suspect]
     Active Substance: DAMOCTOCOG ALFA PEGOL
     Indication: HAEMOPHILIA
     Dosage: UNK
     Dates: start: 20210302, end: 20210315

REACTIONS (8)
  - Muscle haemorrhage [Recovered/Resolved]
  - Abdominal pain [Recovered/Resolved]
  - Throat tightness [Recovered/Resolved]
  - Flushing [Recovered/Resolved]
  - Dizziness [Recovered/Resolved]
  - Hypersensitivity [Recovered/Resolved]
  - Nausea [Recovered/Resolved]
  - Vision blurred [Recovered/Resolved]

NARRATIVE: CASE EVENT DATE: 20210302
